FAERS Safety Report 4630442-0 (Version None)
Quarter: 2005Q2

REPORT INFORMATION
  Report Type: 
  Country: None (occurrence: None)
  Receive Date: 20050406
  Receipt Date: 20050322
  Transmission Date: 20051028
  Serious: Yes (Hospitalization)
  Sender: FDA-Public Use
  Company Number: TRP_0089_2005

PATIENT
  Age: 38 Year
  Sex: Male
  Weight: 52.6173 kg

DRUGS (11)
  1. RIBASPHERE [Suspect]
     Indication: HEPATITIS C
     Dosage: 800 MG QDAY PO
     Route: 048
     Dates: end: 20050306
  2. REBETOL [Suspect]
     Indication: HEPATITIS C
     Dosage: 800 MG QDAY PO
     Route: 048
     Dates: start: 20041210
  3. PEG-INTRON [Suspect]
     Indication: HEPATITIS C
     Dosage: 80 MCG QWK SC
     Route: 058
     Dates: start: 20041210, end: 20050306
  4. HYDROCODONE BITARTRATE [Concomitant]
  5. PAXIL [Concomitant]
  6. ANALGESIC (NOS) [Concomitant]
  7. TEMAZEPAM [Concomitant]
  8. DIAZEPAM [Concomitant]
  9. TOPROL-XL [Concomitant]
  10. PLAQUENIL [Concomitant]
  11. ZANAFLEX [Concomitant]

REACTIONS (4)
  - LUNG ABSCESS [None]
  - PNEUMONIA [None]
  - SEPSIS [None]
  - WEIGHT DECREASED [None]
